FAERS Safety Report 13913333 (Version 1)
Quarter: 2017Q3

REPORT INFORMATION
  Report Type: Spontaneous
  Country: US (occurrence: US)
  Receive Date: 20170828
  Receipt Date: 20170828
  Transmission Date: 20171127
  Serious: No
  Sender: FDA-Public Use
  Company Number: US-ROCHE-1125442

PATIENT
  Sex: Male

DRUGS (11)
  1. PRANDIN [Concomitant]
     Active Substance: REPAGLINIDE
     Route: 048
  2. DIOVAN [Concomitant]
     Active Substance: VALSARTAN
  3. SERZONE [Concomitant]
     Active Substance: NEFAZODONE HYDROCHLORIDE
     Route: 048
  4. NUTROPIN AQ [Suspect]
     Active Substance: SOMATROPIN
     Indication: GROWTH HORMONE DEFICIENCY
     Route: 058
  5. ACCUPRIL [Concomitant]
     Active Substance: QUINAPRIL HYDROCHLORIDE
  6. TOPROL XL [Concomitant]
     Active Substance: METOPROLOL SUCCINATE
     Route: 065
  7. LIPITOR [Concomitant]
     Active Substance: ATORVASTATIN CALCIUM
     Route: 065
     Dates: start: 19981208
  8. SYNTHROID [Concomitant]
     Active Substance: LEVOTHYROXINE SODIUM
     Route: 048
  9. GLUCOPHAGE [Concomitant]
     Active Substance: METFORMIN HYDROCHLORIDE
     Route: 065
  10. TRANXENE T-TAB [Concomitant]
     Active Substance: CLORAZEPATE DIPOTASSIUM
     Route: 048
  11. WELLBUTRIN SR [Concomitant]
     Active Substance: BUPROPION HYDROCHLORIDE

REACTIONS (9)
  - Dyspepsia [Unknown]
  - Arthralgia [Unknown]
  - Insomnia [Unknown]
  - Initial insomnia [Unknown]
  - Thirst [Unknown]
  - Chest pain [Unknown]
  - Headache [Unknown]
  - Diarrhoea [Unknown]
  - Peripheral swelling [Unknown]
